FAERS Safety Report 9995521 (Version 1)
Quarter: 2014Q1

REPORT INFORMATION
  Report Type: Report from Study
  Country: FR (occurrence: FR)
  Receive Date: 20140311
  Receipt Date: 20140311
  Transmission Date: 20141002
  Serious: Yes (Hospitalization)
  Sender: FDA-Public Use
  Company Number: FR-ROCHE-1357358

PATIENT
  Sex: Female

DRUGS (7)
  1. RITUXIMAB [Suspect]
     Indication: RHEUMATOID ARTHRITIS
     Route: 041
     Dates: start: 20080124, end: 20090606
  2. TOCILIZUMAB [Suspect]
     Indication: RHEUMATOID ARTHRITIS
     Route: 041
     Dates: start: 20100303
  3. HYDROXYCHLOROQUINE [Concomitant]
  4. SALAZOPYRINE [Concomitant]
  5. METHOTREXATE [Concomitant]
  6. LEFLUNOMIDE [Concomitant]
  7. CORTANCYL [Concomitant]
     Route: 065

REACTIONS (9)
  - Spondylolisthesis [Recovered/Resolved]
  - Lumbar spinal stenosis [Recovered/Resolved]
  - Scoliosis [Recovered/Resolved]
  - Arthropathy [Recovered/Resolved]
  - Chalazion [Recovered/Resolved]
  - Headache [Unknown]
  - Musculoskeletal stiffness [Unknown]
  - Pain [Unknown]
  - Insomnia [Unknown]
